FAERS Safety Report 8094167-4 (Version None)
Quarter: 2012Q1

REPORT INFORMATION
  Report Type: 
  Country: None (occurrence: None)
  Receive Date: 20120130
  Receipt Date: 20120130
  Transmission Date: 20120608
  Serious: No
  Sender: FDA-Public Use
  Company Number: None

PATIENT
  Age: 41 Year
  Sex: Female
  Weight: 72.574 kg

DRUGS (1)
  1. EFFEXOR XR PROBLEM IS VENLAFLAXINE THE GENERIC [Suspect]

REACTIONS (4)
  - SUICIDAL IDEATION [None]
  - PRODUCT SUBSTITUTION ISSUE [None]
  - AGITATION [None]
  - CRYING [None]
